FAERS Safety Report 8179712-2 (Version None)
Quarter: 2012Q1

REPORT INFORMATION
  Report Type: 
  Country: None (occurrence: None)
  Receive Date: 20120302
  Receipt Date: 20120224
  Transmission Date: 20120608
  Serious: Yes (Life-Threatening)
  Sender: FDA-Public Use
  Company Number: US-INCYTE CORPORATION-2012IN000266

PATIENT
  Sex: Male

DRUGS (15)
  1. LANTUS [Concomitant]
     Dosage: 28 IU, QD (AM)
  2. ACTOS [Concomitant]
     Dosage: 45 MG, QD
  3. ZINC SULFATE [Concomitant]
     Dosage: 1, QD
  4. JAKAFI [Suspect]
     Indication: MYELOFIBROSIS
     Dosage: 5 MG, BID
     Route: 048
     Dates: start: 20120131
  5. M.V.I. [Concomitant]
     Dosage: UNK, QD
  6. SIMVASTATIN [Concomitant]
     Dosage: 20 MG, QD
  7. HYDROCHLOROTHIAZIDE [Concomitant]
     Dosage: 50 MG, QD
  8. ASPIRIN [Concomitant]
     Dosage: 81 MG, BID
  9. METOPROLOL SUCCINATE [Concomitant]
     Dosage: 50 MG, BID
  10. ALLOPURINOL [Concomitant]
     Dosage: 100 MG, QD
  11. CINNAMON [Concomitant]
     Dosage: 500 MG, QD
  12. NOVOLOG [Concomitant]
     Dosage: SLIDING SCALE, PRN
  13. HYDRALAZINE HCL [Concomitant]
     Dosage: 100 MG, BID
  14. LISINOPRIL [Concomitant]
     Dosage: 10 MG, QD
  15. NIFEDIPINE [Concomitant]
     Dosage: 90 MG, BID

REACTIONS (1)
  - BLOOD GLUCOSE DECREASED [None]
